FAERS Safety Report 8108616-6 (Version None)
Quarter: 2012Q1

REPORT INFORMATION
  Report Type: 
  Country: None (occurrence: None)
  Receive Date: 20120202
  Receipt Date: 20120113
  Transmission Date: 20120608
  Serious: No
  Sender: FDA-Public Use
  Company Number: US-AMGEN-USASP2012002716

PATIENT
  Age: 61 Year
  Sex: Female

DRUGS (2)
  1. ANTIBIOTICS [Concomitant]
  2. ENBREL [Suspect]
     Indication: RHEUMATOID ARTHRITIS
     Dosage: 50 MG, QWK
     Dates: start: 20101201

REACTIONS (4)
  - ARTHRALGIA [None]
  - CYST [None]
  - MOBILITY DECREASED [None]
  - PAIN [None]
